FAERS Safety Report 5565066-4 (Version None)
Quarter: 2007Q4

REPORT INFORMATION
  Report Type: 
  Country: None (occurrence: None)
  Receive Date: 20071218
  Receipt Date: 20071212
  Transmission Date: 20080405
  Serious: Yes (Hospitalization)
  Sender: FDA-Public Use
  Company Number: US-WYE-H01691207

PATIENT
  Age: 65 Year
  Sex: Male

DRUGS (21)
  1. AMIODARONE [Suspect]
     Route: 048
  2. SIMVASTATIN [Interacting]
     Route: 048
  3. DOBUTAMINE HCL [Interacting]
     Indication: CARDIAC FAILURE CONGESTIVE
     Dosage: 3 MCG/KG/MIN QD
     Route: 041
     Dates: start: 20060101, end: 20060201
  4. ALBUTEROL [Concomitant]
     Dosage: 2 PUFFS EVERY 4 HOURS AS NEEDED
     Route: 055
  5. BUMETANIDE [Concomitant]
     Route: 048
  6. CALCIUM ACETATE [Concomitant]
     Route: 048
  7. DOCUSATE SODIUM [Concomitant]
     Route: 048
  8. EPOETIN ALFA [Concomitant]
     Dosage: 6000 UNIT EVERY 1 WK
     Route: 058
  9. FERROUS SULFATE TAB [Concomitant]
     Route: 048
  10. FINASTERIDE [Concomitant]
     Route: 048
  11. HYDRALAZINE [Concomitant]
     Route: 048
  12. ISOPHANE INSULIN [Concomitant]
     Dosage: 10 UNIT EVERY 1 DAY
     Route: 058
  13. INSULIN LISPRO [Concomitant]
     Dosage: 3 UNITS WITH MEALS
     Route: 058
  14. ISOSORBIDE DINITRATE [Concomitant]
     Route: 048
  15. METOLAZONE [Concomitant]
     Route: 048
  16. NATEGLINIDE [Concomitant]
     Route: 048
  17. PANTOPRAZOLE SODIUM [Concomitant]
     Route: 048
  18. POTASSIUM CHLORIDE [Concomitant]
     Route: 048
  19. SEVELAMER [Concomitant]
     Route: 048
  20. FLOMAX [Concomitant]
     Route: 048
  21. CARVEDILOL [Interacting]
     Route: 048

REACTIONS (11)
  - BLOOD ALBUMIN DECREASED [None]
  - BLOOD CHLORIDE DECREASED [None]
  - BLOOD CREATININE INCREASED [None]
  - BLOOD GLUCOSE INCREASED [None]
  - BLOOD POTASSIUM INCREASED [None]
  - BLOOD SODIUM DECREASED [None]
  - BLOOD UREA INCREASED [None]
  - BRAIN NATRIURETIC PEPTIDE INCREASED [None]
  - CARDIAC FAILURE CONGESTIVE [None]
  - DRUG INTERACTION [None]
  - MYOCLONUS [None]
